FAERS Safety Report 15999056 (Version 1)
Quarter: 2019Q1

REPORT INFORMATION
  Report Type: Spontaneous
  Country: US (occurrence: US)
  Receive Date: 20190225
  Receipt Date: 20190225
  Transmission Date: 20190418
  Serious: No
  Sender: FDA-Public Use
  Company Number: US-TEVA-2018-US-884927

PATIENT
  Age: 7 Year
  Sex: Male

DRUGS (1)
  1. DISOPYRAMIDE [Suspect]
     Active Substance: DISOPYRAMIDE
     Indication: HYPERTROPHIC CARDIOMYOPATHY
     Dosage: FINAL DOSAGE
     Route: 065

REACTIONS (1)
  - Vomiting [Unknown]
